FAERS Safety Report 18955524 (Version 4)
Quarter: 2021Q2

REPORT INFORMATION
  Report Type: Spontaneous
  Country: US (occurrence: US)
  Receive Date: 20210302
  Receipt Date: 20210616
  Transmission Date: 20210717
  Serious: No
  Sender: FDA-Public Use
  Company Number: US-SA-2021SA066276

PATIENT
  Age: 64 Year
  Sex: Female

DRUGS (1)
  1. DUPIXENT [Suspect]
     Active Substance: DUPILUMAB
     Indication: DERMATITIS ATOPIC
     Dosage: 300 MG, QOW
     Route: 058
     Dates: start: 20200630

REACTIONS (5)
  - Product dose omission issue [Unknown]
  - Alopecia [Unknown]
  - Urticaria [Unknown]
  - Bone pain [Unknown]
  - Pruritus [Unknown]

NARRATIVE: CASE EVENT DATE: 202101
